FAERS Safety Report 16990991 (Version 2)
Quarter: 2020Q3

REPORT INFORMATION
  Report Type: Spontaneous
  Country: US (occurrence: US)
  Receive Date: 20191104
  Receipt Date: 20200924
  Transmission Date: 20201102
  Serious: No
  Sender: FDA-Public Use
  Company Number: US-SA-2019SA303465

PATIENT

DRUGS (6)
  1. CELEXA [CELECOXIB] [Concomitant]
     Active Substance: CELECOXIB
  2. TOPAMAX [Concomitant]
     Active Substance: TOPIRAMATE
  3. VITAMINS NOS [Concomitant]
     Active Substance: VITAMINS
  4. ZYRTEC?D [Concomitant]
     Active Substance: CETIRIZINE HYDROCHLORIDE\PSEUDOEPHEDRINE HYDROCHLORIDE
     Dosage: UNK UNK, Q12H
  5. DUPIXENT [Suspect]
     Active Substance: DUPILUMAB
     Indication: DERMATITIS ATOPIC
     Dosage: 300 MG, QOW
     Route: 058
     Dates: start: 20181001
  6. DUPIXENT [Suspect]
     Active Substance: DUPILUMAB
     Indication: DERMATITIS
     Dosage: 300 MG, OTHER
     Route: 058
     Dates: start: 201903

REACTIONS (5)
  - Erythema [Unknown]
  - Dry skin [Unknown]
  - Product dose omission issue [Unknown]
  - Dermatitis atopic [Unknown]
  - Skin exfoliation [Unknown]

NARRATIVE: CASE EVENT DATE: 2020
